FAERS Safety Report 9956638 (Version 2)
Quarter: 2014Q1

REPORT INFORMATION
  Report Type: Spontaneous
  Country: US (occurrence: US)
  Receive Date: 20140304
  Receipt Date: 20140304
  Transmission Date: 20141002
  Serious: Yes (Hospitalization)
  Sender: FDA-Public Use
  Company Number: US-ABBVIE-13P-163-1090046-00

PATIENT
  Age: 19 Year
  Sex: Male

DRUGS (2)
  1. HUMIRA [Suspect]
     Indication: CROHN^S DISEASE
     Dates: start: 20130419, end: 20130419
  2. HUMIRA [Suspect]
     Dates: start: 20130507, end: 20130507

REACTIONS (2)
  - Crohn^s disease [Unknown]
  - Malaise [Recovered/Resolved]
